FAERS Safety Report 7884173-4 (Version None)
Quarter: 2011Q4

REPORT INFORMATION
  Report Type: 
  Country: None (occurrence: None)
  Receive Date: 20111102
  Receipt Date: 20111013
  Transmission Date: 20120403
  Serious: Yes (Other)
  Sender: FDA-Public Use
  Company Number: AU-GLAXOSMITHKLINE-B0756593A

PATIENT
  Sex: Male
  Weight: 33.7 kg

DRUGS (1)
  1. SERETIDE (50MCG/500MCG) [Suspect]
     Indication: ASTHMA
     Route: 055

REACTIONS (5)
  - MUSCLE TWITCHING [None]
  - OROPHARYNGEAL PAIN [None]
  - OVERDOSE [None]
  - INSOMNIA [None]
  - DRUG DISPENSING ERROR [None]
